FAERS Safety Report 22156675 (Version 1)
Quarter: 2023Q1

REPORT INFORMATION
  Report Type: Spontaneous
  Country: US (occurrence: US)
  Receive Date: 20230330
  Receipt Date: 20230330
  Transmission Date: 20230418
  Serious: Yes (Death)
  Sender: FDA-Public Use
  Company Number: US-SUN PHARMACEUTICAL INDUSTRIES LTD-2023R1-383202

PATIENT
  Age: 51 Year
  Sex: Female

DRUGS (3)
  1. EPOPROSTENOL [Suspect]
     Active Substance: EPOPROSTENOL
     Indication: Pulmonary arterial hypertension
     Dosage: UNK
     Route: 065
  2. MILRINONE [Suspect]
     Active Substance: MILRINONE
     Indication: Pulmonary arterial hypertension
     Dosage: UNK
     Route: 065
  3. NITRIC OXIDE [Suspect]
     Active Substance: NITRIC OXIDE
     Indication: Product used for unknown indication
     Dosage: UNK

REACTIONS (1)
  - Condition aggravated [Fatal]
